FAERS Safety Report 15611431 (Version 1)
Quarter: 2018Q4

REPORT INFORMATION
  Report Type: Spontaneous
  Country: US (occurrence: US)
  Receive Date: 20181107
  Receipt Date: 20181107
  Transmission Date: 20190205
  Serious: Yes (Hospitalization)
  Sender: FDA-Public Use
  Company Number: None

PATIENT
  Age: 47 Year
  Sex: Male
  Weight: 75.8 kg

DRUGS (5)
  1. CYCLOPHOSPHAMIDE. [Suspect]
     Active Substance: CYCLOPHOSPHAMIDE
     Dates: end: 20180927
  2. METHOTREXATE. [Suspect]
     Active Substance: METHOTREXATE
     Dates: end: 20180924
  3. CYTARABINE. [Suspect]
     Active Substance: CYTARABINE
     Dates: end: 20181007
  4. ONCASPAR [Suspect]
     Active Substance: PEGASPARGASE
     Dates: end: 20180913
  5. MERCAPTOPURINE. [Suspect]
     Active Substance: MERCAPTOPURINE
     Dates: end: 20181010

REACTIONS (2)
  - Body temperature increased [None]
  - Nasopharyngitis [None]

NARRATIVE: CASE EVENT DATE: 20181015
